FAERS Safety Report 7850698-0 (Version None)
Quarter: 2011Q4

REPORT INFORMATION
  Report Type: 
  Country: None (occurrence: None)
  Receive Date: 20111026
  Receipt Date: 20111014
  Transmission Date: 20120403
  Serious: Yes (Other)
  Sender: FDA-Public Use
  Company Number: US-US-EMD SERONO, INC.-7053992

PATIENT
  Sex: Female
  Weight: 94 kg

DRUGS (2)
  1. REBIF [Suspect]
     Indication: MULTIPLE SCLEROSIS
     Route: 058
     Dates: start: 20071003
  2. MOTRIN [Concomitant]
     Indication: PREMEDICATION

REACTIONS (7)
  - INJECTION SITE WARMTH [None]
  - PNEUMONIA [None]
  - INJECTION SITE PAIN [None]
  - INJECTION SITE INDURATION [None]
  - PHARYNGITIS STREPTOCOCCAL [None]
  - INJECTION SITE ERYTHEMA [None]
  - INJECTION SITE MASS [None]
